FAERS Safety Report 9167707 (Version 2)
Quarter: 2013Q3

REPORT INFORMATION
  Report Type: Spontaneous
  Country: US (occurrence: None)
  Receive Date: 20130304
  Receipt Date: 20130816
  Transmission Date: 20140515
  Serious: Yes (Hospitalization)
  Sender: FDA-Public Use
  Company Number: 2013AP003270

PATIENT
  Age: 61 Year
  Sex: Male

DRUGS (1)
  1. FLUTICASONE [Suspect]
     Indication: PRODUCT USED FOR UNKNOWN INDICATION
     Route: 045
     Dates: start: 201211

REACTIONS (4)
  - Vasculitis [None]
  - Abdominal pain [None]
  - Renal impairment [None]
  - Polyp [None]
